FAERS Safety Report 4833078-1 (Version None)
Quarter: 2005Q4

REPORT INFORMATION
  Report Type: 
  Country: None (occurrence: None)
  Receive Date: 20051117
  Receipt Date: 20051104
  Transmission Date: 20060501
  Serious: Yes (Other)
  Sender: FDA-Public Use
  Company Number: 2005154155

PATIENT
  Sex: Male

DRUGS (1)
  1. CELEBREX [Suspect]
     Indication: ILL-DEFINED DISORDER

REACTIONS (6)
  - DRUG INEFFECTIVE [None]
  - FRACTURE [None]
  - LIVER DISORDER [None]
  - NEOPLASM [None]
  - RENAL DISORDER [None]
  - UNEVALUABLE EVENT [None]
